FAERS Safety Report 24407191 (Version 1)
Quarter: 2024Q4

REPORT INFORMATION
  Report Type: Spontaneous
  Country: US (occurrence: US)
  Receive Date: 20241007
  Receipt Date: 20241007
  Transmission Date: 20250115
  Serious: No
  Sender: JOHNSON AND JOHNSON
  Company Number: US-JNJFOC-20241016542

PATIENT
  Sex: Female

DRUGS (1)
  1. CHILDRENS MOTRIN [Suspect]
     Active Substance: IBUPROFEN
     Indication: Pyrexia
     Dosage: 7.5 ML TWICE A DAY
     Route: 048

REACTIONS (1)
  - Blood glucose increased [Not Recovered/Not Resolved]
